FAERS Safety Report 10032432 (Version 1)
Quarter: 2014Q1

REPORT INFORMATION
  Report Type: Spontaneous
  Country: US (occurrence: None)
  Receive Date: 20140320
  Receipt Date: 20140320
  Transmission Date: 20141002
  Serious: Yes (Other)
  Sender: FDA-Public Use
  Company Number: 2014-IN-002954

PATIENT
  Age: 10 Year
  Sex: Male

DRUGS (4)
  1. ERWINAZE [Suspect]
  2. PREDNISOLONE [Suspect]
     Indication: ACUTE LEUKAEMIA
  3. VINCRISTINE (VINCRISTINE) [Concomitant]
  4. DAUNORUBICIN (DAUNORUBICIN) [Concomitant]

REACTIONS (1)
  - Zygomycosis [None]
